FAERS Safety Report 9240436 (Version 1)
Quarter: 2013Q1

REPORT INFORMATION
  Report Type: Spontaneous
  Country: US (occurrence: None)
  Receive Date: 20121107
  Receipt Date: 20121107
  Transmission Date: 20140127
  Serious: No
  Sender: FDA-Public Use
  Company Number: 2012HGS-003863

PATIENT
  Age: 46 Year
  Sex: Female
  Weight: 131.54 kg

DRUGS (8)
  1. BENLYSTA [Suspect]
     Indication: SYSTEMIC LUPUS ERYTHEMATOSUS
     Dosage: 1 IN 28 D, INTRAVENOUS DRIP
     Route: 041
     Dates: start: 20120702
  2. AMITRIPTYLINE (AMITRIPTYLINE) (AMITRIPTYLINE) [Concomitant]
  3. PLAQUENIL (HYDROXYCHLOROQUINE PHOSPHATE) (HYDROXYCHLOROQUINE PHOSPHATE) [Concomitant]
  4. PREDNISONE (PREDNISONE) (PREDNISONE) [Concomitant]
  5. EVISTA (RALOXIFENE HYDROCHLORIDE) (RALOXIFENE HYDROCHLORIDE) [Concomitant]
  6. PRILOSEC (OMEPRAZOLE) (OMEPRAZOLE) [Concomitant]
  7. CELEXA (CITALOPRAM HYDROBROMIDE) (CITALOPRAM HYDROBROMIDE) [Concomitant]
  8. HYOSCYAMINE (HYOSCYAMINE) (HYOSCYAMINE) [Concomitant]

REACTIONS (4)
  - Vomiting [None]
  - Abdominal pain [None]
  - Nausea [None]
  - Diarrhoea [None]
